FAERS Safety Report 7542806-6 (Version None)
Quarter: 2011Q2

REPORT INFORMATION
  Report Type: 
  Country: None (occurrence: None)
  Receive Date: 20110524
  Receipt Date: 20110207
  Transmission Date: 20111010
  Serious: No
  Sender: FDA-Public Use
  Company Number: 025184

PATIENT
  Sex: Female
  Weight: 68 kg

DRUGS (3)
  1. PENTASA [Concomitant]
  2. PREDNISONE [Concomitant]
  3. CIMZIA [Suspect]
     Indication: CROHN'S DISEASE
     Dosage: (400 MG 1X/4 WEEKS SUBCUTANEOUS)
     Route: 058
     Dates: start: 20090804

REACTIONS (10)
  - MYALGIA [None]
  - NAUSEA [None]
  - GASTROINTESTINAL DISORDER [None]
  - SINUSITIS [None]
  - VOMITING [None]
  - DRUG INEFFECTIVE [None]
  - SMALL INTESTINAL OBSTRUCTION [None]
  - FEAR OF EATING [None]
  - FATIGUE [None]
  - PYREXIA [None]
